FAERS Safety Report 7442604-8 (Version None)
Quarter: 2011Q2

REPORT INFORMATION
  Report Type: 
  Country: None (occurrence: None)
  Receive Date: 20110428
  Receipt Date: 20110418
  Transmission Date: 20111010
  Serious: Yes (Other)
  Sender: FDA-Public Use
  Company Number: PHHY2011GB33673

PATIENT
  Sex: Female

DRUGS (4)
  1. CLONAZEPAM [Suspect]
     Indication: EPILEPSY
     Dosage: 2.5 MG, DAILY
     Route: 048
  2. BISOPROLOL [Suspect]
     Indication: LONG QT SYNDROME
     Dosage: 1.25 MG, QD
     Route: 048
  3. BISOPROLOL [Suspect]
     Dosage: 2.5 MG, UNK
  4. SEROTONIN ANTAGONISTS [Concomitant]
     Dosage: UNK UKN, UNK

REACTIONS (12)
  - GAIT DISTURBANCE [None]
  - SUICIDAL IDEATION [None]
  - TREMOR [None]
  - INCORRECT DOSE ADMINISTERED [None]
  - EPILEPSY [None]
  - MUSCLE SPASMS [None]
  - PULMONARY EMBOLISM [None]
  - HEART RATE INCREASED [None]
  - HYPOAESTHESIA [None]
  - DRUG INEFFECTIVE [None]
  - NIGHTMARE [None]
  - BLOOD PRESSURE INCREASED [None]
